FAERS Safety Report 6318462-1 (Version None)
Quarter: 2009Q3

REPORT INFORMATION
  Report Type: 
  Country: None (occurrence: None)
  Receive Date: 20090821
  Receipt Date: 20090810
  Transmission Date: 20100115
  Serious: Yes (Hospitalization, Other)
  Sender: FDA-Public Use
  Company Number: US-ELI_LILLY_AND_COMPANY-US200908002655

PATIENT
  Age: 47 Year
  Sex: Male

DRUGS (4)
  1. ZYPREXA [Suspect]
     Indication: SCHIZOPHRENIA, PARANOID TYPE
     Dosage: 30 MG, DAILY (1/D)
     Dates: start: 19960101
  2. ZYPREXA [Suspect]
     Dosage: 20 MG, DAILY (1/D)
  3. ZYPREXA [Suspect]
     Dosage: 35 MG, DAILY (1/D)
  4. ZYPREXA [Suspect]
     Dosage: 40 MG, UNK

REACTIONS (21)
  - ALCOHOL INTERACTION [None]
  - BLOOD CHOLESTEROL INCREASED [None]
  - CARDIAC DISORDER [None]
  - DELUSION [None]
  - DELUSIONAL DISORDER, PERSECUTORY TYPE [None]
  - DEPRESSION [None]
  - DIABETES MELLITUS [None]
  - DRUG INEFFECTIVE [None]
  - DRUG INTERACTION [None]
  - FEAR [None]
  - HALLUCINATION, VISUAL [None]
  - HYPERTENSION [None]
  - INTENTIONAL OVERDOSE [None]
  - NERVOUSNESS [None]
  - NICOTINE DEPENDENCE [None]
  - OVERDOSE [None]
  - PSYCHOTIC DISORDER [None]
  - SCHIZOPHRENIA [None]
  - SOMNOLENCE [None]
  - TACHYPHRENIA [None]
  - THROMBOSIS [None]
